FAERS Safety Report 5335893-7 (Version None)
Quarter: 2007Q1

REPORT INFORMATION
  Report Type: 
  Country: None (occurrence: None)
  Receive Date: 20070301
  Receipt Date: 20060421
  Transmission Date: 20070707
  Serious: Yes (Other)
  Sender: FDA-Public Use
  Company Number: 2006033801

PATIENT
  Age: 49 Year
  Sex: Female

DRUGS (4)
  1. RELPAX [Suspect]
     Indication: ILL-DEFINED DISORDER
     Dosage: (40 MG
  2. PROPRANOLOL [Suspect]
     Indication: ILL-DEFINED DISORDER
     Dosage: (100 MG)
  3. ALLEGRA [Suspect]
     Indication: ILL-DEFINED DISORDER
  4. DIOVAN [Suspect]
     Indication: ILL-DEFINED DISORDER
     Dosage: (160 MG)

REACTIONS (1)
  - BLOOD PRESSURE [None]
